FAERS Safety Report 4807759-X (Version None)
Quarter: 2005Q4

REPORT INFORMATION
  Report Type: 
  Country: None (occurrence: None)
  Receive Date: 20051021
  Receipt Date: 20051012
  Transmission Date: 20060501
  Serious: No
  Sender: FDA-Public Use
  Company Number: US-2005-021246

PATIENT
  Sex: Female

DRUGS (1)
  1. CLIMARA [Suspect]
     Dosage: 0.05 MG/D, CONT, TRANSDERMAL
     Route: 062
     Dates: start: 20020101

REACTIONS (2)
  - CARPAL TUNNEL DECOMPRESSION [None]
  - PHARMACEUTICAL PRODUCT COMPLAINT [None]
